FAERS Safety Report 7441088-3 (Version None)
Quarter: 2011Q2

REPORT INFORMATION
  Report Type: 
  Country: None (occurrence: None)
  Receive Date: 20110427
  Receipt Date: 20110419
  Transmission Date: 20111010
  Serious: Yes (Other)
  Sender: FDA-Public Use
  Company Number: CN-BAYER-2011-034061

PATIENT
  Age: 66 Year
  Sex: Female

DRUGS (4)
  1. GLUCOBAY [Suspect]
     Indication: DIABETES MELLITUS
     Dosage: UNK
     Dates: start: 20101001
  2. ADALAT [Concomitant]
     Dosage: UNK
     Dates: start: 20101001
  3. NOVOLIN 30R CHU [Concomitant]
  4. METFORMIN [Concomitant]

REACTIONS (4)
  - ABDOMINAL PAIN [None]
  - FLATULENCE [None]
  - COLITIS EROSIVE [None]
  - DIARRHOEA [None]
